FAERS Safety Report 7080449-1 (Version None)
Quarter: 2010Q4

REPORT INFORMATION
  Report Type: 
  Country: None (occurrence: None)
  Receive Date: 20101103
  Receipt Date: 20101025
  Transmission Date: 20110411
  Serious: Yes (Disabling, Other)
  Sender: FDA-Public Use
  Company Number: CO-BAYER-201020431LA

PATIENT
  Age: 40 Year
  Sex: Female

DRUGS (1)
  1. BETAFERON [Suspect]
     Indication: MULTIPLE SCLEROSIS
     Route: 058
     Dates: end: 20101001

REACTIONS (5)
  - BLINDNESS UNILATERAL [None]
  - CONVULSION [None]
  - HEADACHE [None]
  - PYREXIA [None]
  - TREMOR [None]
